FAERS Safety Report 20510316 (Version 1)
Quarter: 2022Q1

REPORT INFORMATION
  Report Type: Report from Study
  Country: GB (occurrence: GB)
  Receive Date: 20220224
  Receipt Date: 20220224
  Transmission Date: 20220423
  Serious: Yes (Other)
  Sender: FDA-Public Use
  Company Number: GB-NOVOPROD-887614

PATIENT
  Age: 62 Year
  Sex: Male
  Weight: 104 kg

DRUGS (4)
  1. SEMAGLUTIDE [Suspect]
     Active Substance: SEMAGLUTIDE
     Indication: Type 2 diabetes mellitus
     Dosage: 1 MG, QW
     Route: 058
     Dates: start: 20190802
  2. SEMAGLUTIDE [Suspect]
     Active Substance: SEMAGLUTIDE
     Dosage: UNK
     Dates: start: 20210319
  3. SEMAGLUTIDE [Suspect]
     Active Substance: SEMAGLUTIDE
     Dosage: UNK
     Dates: start: 20190927, end: 20210304
  4. SEMAGLUTIDE [Suspect]
     Active Substance: SEMAGLUTIDE
     Dosage: UNK
     Dates: start: 20190802, end: 20190920

REACTIONS (2)
  - Macular oedema [Not Recovered/Not Resolved]
  - Retinopathy proliferative [Not Recovered/Not Resolved]

NARRATIVE: CASE EVENT DATE: 20220120
